FAERS Safety Report 8543771-5 (Version None)
Quarter: 2012Q3

REPORT INFORMATION
  Report Type: 
  Country: None (occurrence: None)
  Receive Date: 20120727
  Receipt Date: 20120718
  Transmission Date: 20120928
  Serious: Yes (Hospitalization)
  Sender: FDA-Public Use
  Company Number: CA-JNJFOC-20120710162

PATIENT
  Sex: Female
  Weight: 81.65 kg

DRUGS (4)
  1. FOLIC ACID [Concomitant]
     Route: 065
  2. METHOTREXATE [Concomitant]
     Route: 065
  3. REMICADE [Suspect]
     Indication: CROHN'S DISEASE
     Route: 042
     Dates: start: 20090101
  4. PREVACID [Concomitant]
     Route: 065

REACTIONS (2)
  - VOMITING [None]
  - DIARRHOEA [None]
